FAERS Safety Report 18530811 (Version 1)
Quarter: 2020Q4

REPORT INFORMATION
  Report Type: Report from Study
  Country: US (occurrence: US)
  Receive Date: 20201121
  Receipt Date: 20201121
  Transmission Date: 20210114
  Serious: No
  Sender: FDA-Public Use
  Company Number: NVSC2020US303703

PATIENT
  Sex: Male

DRUGS (1)
  1. TABRECTA [Suspect]
     Active Substance: CAPMATINIB
     Indication: LUNG NEOPLASM MALIGNANT
     Dosage: 200 MG, BID (TWICE A  DAY)
     Route: 048

REACTIONS (3)
  - Fatigue [Unknown]
  - Gait disturbance [Unknown]
  - Asthenia [Unknown]
